FAERS Safety Report 5279061-6 (Version None)
Quarter: 2007Q1

REPORT INFORMATION
  Report Type: 
  Country: None (occurrence: None)
  Receive Date: 20061208
  Receipt Date: 20050524
  Transmission Date: 20070707
  Serious: Yes (Disabling)
  Sender: FDA-Public Use
  Company Number: 2005UW08055

PATIENT
  Age: 61 Year
  Sex: Male
  Weight: 100.24 kg

DRUGS (6)
  1. CRESTOR [Suspect]
     Indication: BLOOD CHOLESTEROL INCREASED
     Dosage: 10 MG PO
     Route: 048
     Dates: start: 20031201, end: 20040501
  2. VASOTEC [Concomitant]
  3. PREDNISONE PACK [Concomitant]
  4. STOMACH PILL [Concomitant]
  5. NITROGLYCERIN [Concomitant]
  6. DILACOR XR [Concomitant]

REACTIONS (2)
  - MUSCULAR WEAKNESS [None]
  - MYALGIA [None]
